FAERS Safety Report 9783228 (Version 1)
Quarter: 2013Q4

REPORT INFORMATION
  Report Type: Spontaneous
  Country: CH (occurrence: CH)
  Receive Date: 20131226
  Receipt Date: 20131226
  Transmission Date: 20140711
  Serious: Yes (Other)
  Sender: FDA-Public Use
  Company Number: PHHY2013CH150240

PATIENT
  Age: 59 Year
  Sex: Male

DRUGS (5)
  1. CIP ECO [Suspect]
     Indication: PROSTATISM
     Dosage: 1000 MG, PER DAY
     Route: 048
     Dates: start: 2005, end: 2012
  2. CIPROXIN [Suspect]
     Indication: PROSTATISM
     Dosage: 1000 MG, PER DAY
     Route: 048
     Dates: start: 1991, end: 2005
  3. ALFUZOSIN [Concomitant]
     Indication: BENIGN PROSTATIC HYPERPLASIA
     Route: 048
     Dates: start: 2004
  4. DUTASTERIDE [Concomitant]
     Indication: BENIGN PROSTATIC HYPERPLASIA
     Route: 048
     Dates: start: 2008
  5. LISINOPRIL [Concomitant]
     Indication: ESSENTIAL HYPERTENSION
     Dosage: 20 MG, QD
     Route: 048
     Dates: start: 1990

REACTIONS (2)
  - Demyelinating polyneuropathy [Not Recovered/Not Resolved]
  - Paraesthesia [Not Recovered/Not Resolved]
